FAERS Safety Report 8192874-6 (Version None)
Quarter: 2012Q1

REPORT INFORMATION
  Report Type: 
  Country: None (occurrence: None)
  Receive Date: 20120308
  Receipt Date: 20120228
  Transmission Date: 20120608
  Serious: Yes (Other)
  Sender: FDA-Public Use
  Company Number: US-PFIZER INC-2008004929JJ

PATIENT
  Age: 4 Year
  Sex: Female
  Weight: 18.14 kg

DRUGS (2)
  1. GUAIFENESIN/PHENYLEPHRINE HYDROCHLORIDE [Suspect]
     Indication: RHINORRHOEA
     Dosage: UNSPECIFIED
     Route: 048
     Dates: start: 20080120
  2. MOTRIN [Suspect]
     Dosage: UNK

REACTIONS (3)
  - OEDEMA PERIPHERAL [None]
  - RENAL DISORDER [None]
  - RASH [None]
